FAERS Safety Report 8218054-3 (Version None)
Quarter: 2012Q1

REPORT INFORMATION
  Report Type: 
  Country: None (occurrence: None)
  Receive Date: 20120319
  Receipt Date: 20120316
  Transmission Date: 20120608
  Serious: Yes (Other)
  Sender: FDA-Public Use
  Company Number: US-PFIZER INC-2012070050

PATIENT
  Sex: Female
  Weight: 52.608 kg

DRUGS (1)
  1. ZOLOFT [Suspect]
     Indication: DEPRESSION
     Dosage: 100 MG, DAILY
     Dates: start: 19850101

REACTIONS (2)
  - INTERVERTEBRAL DISC PROTRUSION [None]
  - BACK INJURY [None]
